FAERS Safety Report 8068261-8 (Version None)
Quarter: 2012Q1

REPORT INFORMATION
  Report Type: 
  Country: None (occurrence: None)
  Receive Date: 20120124
  Receipt Date: 20111006
  Transmission Date: 20120608
  Serious: No
  Sender: FDA-Public Use
  Company Number: US-AMGEN-USASP2011051802

PATIENT
  Age: 81 Year
  Sex: Female

DRUGS (12)
  1. PROLIA [Suspect]
     Indication: OSTEOPOROSIS POSTMENOPAUSAL
     Dosage: 60 MG, Q6MO
  2. ZOLOFT [Concomitant]
  3. ASCORBIC ACID [Concomitant]
  4. METHOTREXATE [Concomitant]
  5. ANTIHYPERTENSIVES [Concomitant]
  6. BIOTIN [Concomitant]
  7. XANAX [Concomitant]
  8. PRILOSEC [Concomitant]
  9. MULTI-VITAMINS [Concomitant]
  10. CALCIUM [Concomitant]
  11. ASPIRIN [Concomitant]
  12. VITAMIN E [Concomitant]

REACTIONS (1)
  - BACK PAIN [None]
